FAERS Safety Report 16938144 (Version 1)
Quarter: 2019Q4

REPORT INFORMATION
  Report Type: Spontaneous
  Country: FR (occurrence: FR)
  Receive Date: 20191018
  Receipt Date: 20191018
  Transmission Date: 20200122
  Serious: Yes (Other)
  Sender: FDA-Public Use
  Company Number: FR-ETHYPHARM-201902177

PATIENT
  Age: 26 Year
  Sex: Female

DRUGS (1)
  1. BUPRENORPHINE. [Suspect]
     Active Substance: BUPRENORPHINE
     Indication: PRODUCT USED FOR UNKNOWN INDICATION
     Route: 045

REACTIONS (5)
  - Suicidal ideation [Unknown]
  - Drug abuse [Unknown]
  - Drug dependence [Unknown]
  - Intentional product use issue [Unknown]
  - Withdrawal syndrome [Unknown]
